FAERS Safety Report 12998448 (Version 1)
Quarter: 2016Q4

REPORT INFORMATION
  Report Type: Spontaneous
  Country: US (occurrence: US)
  Receive Date: 20161202
  Receipt Date: 20161202
  Transmission Date: 20170207
  Serious: No
  Sender: FDA-Public Use
  Company Number: None

PATIENT
  Age: 46 Year
  Sex: Male
  Weight: 115.9 kg

DRUGS (1)
  1. GADOBENATE [Suspect]
     Active Substance: GADOBENATE DIMEGLUMINE
     Dates: start: 20161012, end: 20161012

REACTIONS (2)
  - Hypotension [None]
  - Respiratory depression [None]

NARRATIVE: CASE EVENT DATE: 20161012
